FAERS Safety Report 8322103-1 (Version None)
Quarter: 2012Q2

REPORT INFORMATION
  Report Type: 
  Country: None (occurrence: None)
  Receive Date: 20120426
  Receipt Date: 20120417
  Transmission Date: 20120825
  Serious: Yes (Death)
  Sender: FDA-Public Use
  Company Number: ENTC2012-0172

PATIENT
  Age: 85 Year
  Sex: Female

DRUGS (1)
  1. STALEVO 100 [Suspect]
     Indication: PARKINSON'S DISEASE
     Dosage: 100/25/200 MG DAILY, STRENGTH: 100/25/200 MG
     Dates: start: 20110510

REACTIONS (1)
  - DEATH [None]
